FAERS Safety Report 25070997 (Version 2)
Quarter: 2025Q1

REPORT INFORMATION
  Report Type: Report from Study
  Country: US (occurrence: US)
  Receive Date: 20250312
  Receipt Date: 20250314
  Transmission Date: 20250408
  Serious: Yes (Other)
  Sender: UCB
  Company Number: US-UCBSA-2025012640

PATIENT
  Age: 15 Year
  Sex: Female
  Weight: 75 kg

DRUGS (2)
  1. FINTEPLA [Suspect]
     Active Substance: FENFLURAMINE
     Indication: Lennox-Gastaut syndrome
     Dosage: 5 MILLILITER, 2X/DAY (BID)
     Route: 048
     Dates: start: 20221214
  2. FINTEPLA [Suspect]
     Active Substance: FENFLURAMINE

REACTIONS (2)
  - Left-to-right cardiac shunt [Unknown]
  - Atrial septal defect [Unknown]

NARRATIVE: CASE EVENT DATE: 20230609
